FAERS Safety Report 8513771-X (Version None)
Quarter: 2012Q3

REPORT INFORMATION
  Report Type: 
  Country: None (occurrence: None)
  Receive Date: 20120717
  Receipt Date: 20120709
  Transmission Date: 20120928
  Serious: Yes (Other)
  Sender: FDA-Public Use
  Company Number: US-PFIZER INC-2012167526

PATIENT
  Sex: Female
  Weight: 89.796 kg

DRUGS (5)
  1. BENAZEPRIL [Concomitant]
     Dosage: UNK
  2. NORVASC [Suspect]
     Indication: HYPERTENSION
     Dosage: 5 MG, ONCE DAILY
     Route: 048
  3. CELEBREX [Suspect]
     Indication: ARTHRITIS
     Dosage: UNK
     Dates: start: 20120101
  4. CELEBREX [Suspect]
     Indication: FIBROMYALGIA
  5. CELEBREX [Suspect]
     Indication: INTERVERTEBRAL DISC PROTRUSION

REACTIONS (1)
  - PANCREATITIS ACUTE [None]
